FAERS Safety Report 16453674 (Version 1)
Quarter: 2019Q2

REPORT INFORMATION
  Report Type: Spontaneous
  Country: US (occurrence: US)
  Receive Date: 20190619
  Receipt Date: 20190619
  Transmission Date: 20190711
  Serious: No
  Sender: FDA-Public Use
  Company Number: US-ROCHE-2267567

PATIENT

DRUGS (4)
  1. ENBREL [Concomitant]
     Active Substance: ETANERCEPT
     Dosage: 50 MG/ML
     Route: 065
     Dates: start: 201307, end: 201410
  2. METHOTREXATE. [Concomitant]
     Active Substance: METHOTREXATE
     Route: 065
     Dates: start: 201301, end: 201512
  3. ACTEMRA [Suspect]
     Active Substance: TOCILIZUMAB
     Indication: RHEUMATOID ARTHRITIS
     Route: 065
     Dates: start: 201603, end: 201709
  4. IBUPROFEN. [Concomitant]
     Active Substance: IBUPROFEN
     Route: 065
     Dates: end: 201506

REACTIONS (2)
  - No adverse event [Unknown]
  - Drug ineffective [Unknown]
